FAERS Safety Report 16981800 (Version 1)
Quarter: 2019Q4

REPORT INFORMATION
  Report Type: Report from Study
  Country: US (occurrence: US)
  Receive Date: 20191101
  Receipt Date: 20191101
  Transmission Date: 20200122
  Serious: Yes (Other)
  Sender: FDA-Public Use
  Company Number: US-AMGEN-USASL2019177369

PATIENT
  Sex: Female

DRUGS (1)
  1. BLINCYTO [Suspect]
     Active Substance: BLINATUMOMAB
     Indication: ACUTE LYMPHOCYTIC LEUKAEMIA RECURRENT
     Dosage: 26 MICROGRAM, QD
     Route: 065
     Dates: start: 20191021

REACTIONS (4)
  - T-lymphocyte count decreased [Recovering/Resolving]
  - Aphasia [Recovered/Resolved]
  - Transient ischaemic attack [Recovered/Resolved]
  - Diplopia [Unknown]

NARRATIVE: CASE EVENT DATE: 201910
